FAERS Safety Report 5273355-6 (Version None)
Quarter: 2007Q1

REPORT INFORMATION
  Report Type: 
  Country: None (occurrence: None)
  Receive Date: 20070319
  Receipt Date: 20070223
  Transmission Date: 20070707
  Serious: Yes (Death)
  Sender: FDA-Public Use
  Company Number: 237495

PATIENT
  Age: 72 Year
  Sex: Male
  Weight: 87 kg

DRUGS (7)
  1. AVASTIN [Suspect]
     Indication: COLORECTAL CANCER METASTATIC
     Dosage: 435 MG, INTRAVENOUS
     Route: 042
     Dates: start: 20070122, end: 20070218
  2. OXALIPLATIN [Suspect]
     Indication: COLORECTAL CANCER METASTATIC
     Dosage: 178 MG, INTRAVENOUS
     Route: 042
     Dates: start: 20070122, end: 20070218
  3. FLUOROURACIL [Suspect]
     Indication: COLORECTAL CANCER METASTATIC
     Dosage: SEE IMAGE
     Route: 042
     Dates: start: 20070122, end: 20070218
  4. FLUOROURACIL [Suspect]
     Indication: COLORECTAL CANCER METASTATIC
     Dosage: SEE IMAGE
     Route: 042
     Dates: start: 20070122, end: 20070218
  5. LEUCOVORIN CALCIUM [Suspect]
     Indication: COLORECTAL CANCER METASTATIC
     Dosage: 420 MG, INTRAVENOUS
     Route: 042
     Dates: start: 20070122, end: 20070218
  6. LOPERAMIDE [Concomitant]
  7. POTASSIUM CHLORIDE [Concomitant]

REACTIONS (1)
  - SUDDEN DEATH [None]
